FAERS Safety Report 5867042-0 (Version None)
Quarter: 2008Q3

REPORT INFORMATION
  Report Type: 
  Country: None (occurrence: None)
  Receive Date: 20080902
  Receipt Date: 20080829
  Transmission Date: 20090109
  Serious: Yes (Hospitalization)
  Sender: FDA-Public Use
  Company Number: B0515799A

PATIENT
  Age: 34 Year
  Sex: Male
  Weight: 78 kg

DRUGS (13)
  1. ARRANON [Suspect]
     Dosage: 1500MGM2 PER DAY
     Route: 042
     Dates: start: 20080407, end: 20080407
  2. CYTARABINE [Concomitant]
     Indication: NEOPLASM MALIGNANT
     Route: 042
     Dates: start: 20080321, end: 20080322
  3. ETOPOSIDE [Concomitant]
     Indication: NEOPLASM MALIGNANT
     Route: 042
     Dates: start: 20080320, end: 20080322
  4. ENDOXAN [Concomitant]
     Indication: NEOPLASM MALIGNANT
     Dates: start: 20080320, end: 20080320
  5. ENDOXAN [Concomitant]
     Dates: start: 20080409, end: 20080411
  6. ADRIACIN [Concomitant]
     Indication: NEOPLASM MALIGNANT
     Route: 042
     Dates: start: 20080412, end: 20080413
  7. ONCOVIN [Concomitant]
     Indication: NEOPLASM MALIGNANT
     Route: 042
     Dates: start: 20080412, end: 20080412
  8. ONCOVIN [Concomitant]
     Route: 042
     Dates: start: 20080419, end: 20080419
  9. PREDONINE [Concomitant]
     Route: 048
     Dates: start: 20080413, end: 20080511
  10. NEUTROGIN [Concomitant]
     Route: 065
     Dates: start: 20080415, end: 20080511
  11. MAXIPIME [Concomitant]
     Route: 042
     Dates: start: 20080415, end: 20080502
  12. FUNGUARD [Concomitant]
     Route: 042
     Dates: start: 20080415, end: 20080511
  13. ZYVOX [Concomitant]
     Route: 042
     Dates: start: 20080417, end: 20080511

REACTIONS (1)
  - SUPRAVENTRICULAR TACHYCARDIA [None]
